FAERS Safety Report 4299206-4 (Version None)
Quarter: 2004Q1

REPORT INFORMATION
  Report Type: 
  Country: None (occurrence: None)
  Receive Date: 20040217
  Receipt Date: 20040205
  Transmission Date: 20041129
  Serious: Yes (Death)
  Sender: FDA-Public Use
  Company Number: 204524

PATIENT
  Age: 31 Year
  Sex: Female

DRUGS (9)
  1. HERCEPTIN [Suspect]
     Indication: BREAST CANCER
     Dosage: 1.2 UNIT, INTRAVENOUS
     Route: 042
     Dates: start: 20030918, end: 20031015
  2. TAXOTERE [Suspect]
     Indication: BREAST CANCER
     Dosage: INTRAVENOUS
     Route: 042
     Dates: start: 20030918, end: 20031015
  3. LOSEC (OMEPRAZOLE) [Concomitant]
  4. ZOLPIDEM TARTRATE [Concomitant]
  5. ZOLOFT [Concomitant]
  6. PANODIL (ACETAMINOPHEN) [Concomitant]
  7. TAVEGYL (CLEMASTINE FUMARATE) [Concomitant]
  8. CETIRIZINE HCL [Concomitant]
  9. NAPROXEN [Suspect]

REACTIONS (12)
  - APNOEA [None]
  - ARTHRALGIA [None]
  - BLOOD PRESSURE SYSTOLIC DECREASED [None]
  - BREAST CANCER METASTATIC [None]
  - CARDIAC ARREST [None]
  - CYANOSIS [None]
  - DEPRESSED LEVEL OF CONSCIOUSNESS [None]
  - DISSEMINATED INTRAVASCULAR COAGULATION [None]
  - GAMMA-GLUTAMYLTRANSFERASE INCREASED [None]
  - PAIN IN EXTREMITY [None]
  - RESPIRATORY DISORDER [None]
  - TACHYCARDIA [None]
